FAERS Safety Report 4772547-X (Version None)
Quarter: 2005Q3

REPORT INFORMATION
  Report Type: 
  Country: None (occurrence: None)
  Receive Date: 20050915
  Receipt Date: 20050915
  Transmission Date: 20060218
  Serious: Yes (Disabling)
  Sender: FDA-Public Use
  Company Number: None

PATIENT
  Age: 34 Year
  Sex: Female
  Weight: 52.1637 kg

DRUGS (2)
  1. CIPRO [Suspect]
     Indication: PERITONITIS
     Dates: start: 20050113, end: 20050208
  2. LEVAQUIN [Suspect]
     Indication: PERITONITIS
     Dates: start: 20050113, end: 20050208

REACTIONS (4)
  - ARTHRALGIA [None]
  - DECREASED ACTIVITY [None]
  - PAIN [None]
  - TENDONITIS [None]
